FAERS Safety Report 16608029 (Version 1)
Quarter: 2019Q3

REPORT INFORMATION
  Report Type: Spontaneous
  Country: US (occurrence: US)
  Receive Date: 20190722
  Receipt Date: 20190722
  Transmission Date: 20191004
  Serious: Yes (Other)
  Sender: FDA-Public Use
  Company Number: US-PFIZER INC-2019302965

PATIENT
  Age: 24 Year
  Sex: Female

DRUGS (6)
  1. LYRICA [Suspect]
     Active Substance: PREGABALIN
     Dosage: 75 MG, 1X/DAY (FOR 7 DAYS)
     Route: 048
  2. TRAMADOL. [Concomitant]
     Active Substance: TRAMADOL
     Indication: SCOLIOSIS
     Dosage: 50 MG, 2X/DAY (ALLOWED TO TAKE UP TO THREE TIMES A DAY)
     Route: 048
  3. LYRICA [Suspect]
     Active Substance: PREGABALIN
     Dosage: 75 MG, ALTERNATE DAY (FOR 7 DAYS)
     Route: 048
  4. LYRICA [Suspect]
     Active Substance: PREGABALIN
     Indication: NEURALGIA
     Dosage: 75 MG, 3X/DAY, (FOR 7 DAYS)
     Route: 048
  5. LYRICA [Suspect]
     Active Substance: PREGABALIN
     Dosage: 75 MG, 2X/DAY (FOR 7 DAYS)
     Route: 048
  6. TRAMADOL. [Concomitant]
     Active Substance: TRAMADOL
     Indication: NEURALGIA

REACTIONS (10)
  - Rash [Unknown]
  - Palpitations [Recovered/Resolved]
  - Feeling hot [Not Recovered/Not Resolved]
  - Anxiety [Not Recovered/Not Resolved]
  - Dizziness [Unknown]
  - Tremor [Unknown]
  - Vision blurred [Unknown]
  - Insomnia [Unknown]
  - Dysaesthesia [Not Recovered/Not Resolved]
  - Nausea [Not Recovered/Not Resolved]

NARRATIVE: CASE EVENT DATE: 20190707
